FAERS Safety Report 8456442-0 (Version None)
Quarter: 2012Q2

REPORT INFORMATION
  Report Type: 
  Country: None (occurrence: None)
  Receive Date: 20120323
  Receipt Date: 20111121
  Transmission Date: 20120825
  Serious: Yes (Other)
  Sender: FDA-Public Use
  Company Number: 163-21880-11092160

PATIENT
  Age: 50 Year
  Sex: Male

DRUGS (7)
  1. REVLIMID [Suspect]
     Indication: MULTIPLE MYELOMA
     Dosage: 25 MG, DAILY X 21 D/28D, PO, 15 MG, DAILY X 21D/28D, PO
     Route: 048
     Dates: start: 20111001
  2. REVLIMID [Suspect]
     Indication: MULTIPLE MYELOMA
     Dosage: 25 MG, DAILY X 21 D/28D, PO, 15 MG, DAILY X 21D/28D, PO
     Route: 048
     Dates: start: 20110301, end: 20110902
  3. FLUTICASONE (FLUTICASONE)(UNKNOWN) [Concomitant]
  4. DULOXETINE HYDROCHLORIDE [Concomitant]
  5. ASPIRIN [Concomitant]
  6. ATENOLOL [Concomitant]
  7. REVLIMID [Suspect]

REACTIONS (1)
  - NEUTROPENIA [None]
